FAERS Safety Report 22288472 (Version 1)
Quarter: 2023Q2

REPORT INFORMATION
  Report Type: Spontaneous
  Country: US (occurrence: US)
  Receive Date: 20230505
  Receipt Date: 20230505
  Transmission Date: 20230722
  Serious: No
  Sender: FDA-Public Use
  Company Number: US-SANOFI-01598999

PATIENT
  Age: 92 Year
  Sex: Male
  Weight: 92 kg

DRUGS (1)
  1. MULTAQ [Suspect]
     Active Substance: DRONEDARONE
     Dosage: UNK

REACTIONS (2)
  - Product prescribing error [Unknown]
  - Unintentional use for unapproved indication [Unknown]
